FAERS Safety Report 4949516-X (Version None)
Quarter: 2006Q1

REPORT INFORMATION
  Report Type: 
  Country: None (occurrence: None)
  Receive Date: 20060316
  Receipt Date: 20060308
  Transmission Date: 20060701
  Serious: Yes (Hospitalization)
  Sender: FDA-Public Use
  Company Number: 2006033490

PATIENT
  Age: 35 Year
  Sex: Female
  Weight: 49.8957 kg

DRUGS (1)
  1. VISINE II EYE DROPS [Suspect]
     Indication: ACCIDENTAL EXPOSURE
     Dosage: WHOLE BOTTLE ONCE; ORAL
     Route: 048
     Dates: start: 20060228, end: 20060228

REACTIONS (3)
  - ACCIDENTAL EXPOSURE [None]
  - ILL-DEFINED DISORDER [None]
  - MENTAL DISORDER [None]
